FAERS Safety Report 5700174-6 (Version None)
Quarter: 2008Q2

REPORT INFORMATION
  Report Type: 
  Country: None (occurrence: None)
  Receive Date: 20080409
  Receipt Date: 20080404
  Transmission Date: 20081010
  Serious: Yes (Other)
  Sender: FDA-Public Use
  Company Number: FR-JNJFOC-20070705003

PATIENT
  Sex: Female
  Weight: 101 kg

DRUGS (3)
  1. HALDOL DECANOAS [Suspect]
     Indication: SCHIZOPHRENIA
     Route: 030
  2. ANAFRANIL [Suspect]
     Indication: OBSESSIVE-COMPULSIVE DISORDER
  3. NOZINAN [Suspect]
     Indication: SCHIZOPHRENIA
     Route: 048

REACTIONS (3)
  - DISTURBANCE IN SOCIAL BEHAVIOUR [None]
  - DRUG EXPOSURE DURING PREGNANCY [None]
  - PSYCHOTIC DISORDER [None]
